FAERS Safety Report 7993119-X (Version None)
Quarter: 2011Q4

REPORT INFORMATION
  Report Type: 
  Country: None (occurrence: None)
  Receive Date: 20111219
  Receipt Date: 20110318
  Transmission Date: 20120403
  Serious: No
  Sender: FDA-Public Use
  Company Number: US-ASTRAZENECA-2011SE15387

PATIENT
  Age: 45 Year
  Sex: Female
  Weight: 85.7 kg

DRUGS (2)
  1. CRESTOR [Suspect]
     Route: 048
  2. CRESTOR [Suspect]
     Indication: HYPERCHOLESTEROLAEMIA
     Route: 048
     Dates: end: 20110315

REACTIONS (3)
  - PAIN [None]
  - PALPITATIONS [None]
  - MUSCLE ATROPHY [None]
